FAERS Safety Report 24015045 (Version 3)
Quarter: 2024Q4

REPORT INFORMATION
  Report Type: Report from Study
  Country: US (occurrence: US)
  Receive Date: 20240626
  Receipt Date: 20241025
  Transmission Date: 20250115
  Serious: No
  Sender: ROCHE
  Company Number: US-ROCHE-10000002196

PATIENT
  Age: 60 Year
  Sex: Female
  Weight: 65.77 kg

DRUGS (5)
  1. OCREVUS [Suspect]
     Active Substance: OCRELIZUMAB
     Indication: Relapsing-remitting multiple sclerosis
     Route: 042
     Dates: start: 20200918
  2. MODERNA COVID-19 VACCINE [Concomitant]
     Active Substance: ELASOMERAN
     Dosage: ON 12-MAY-2021, 09-JUN-2021, 01-SEP-2021, 15-DEC-2022, 23-AUG-2023
     Dates: start: 20210512
  3. BETASERON [Concomitant]
     Active Substance: INTERFERON BETA-1B
  4. AUBAGIO [Concomitant]
     Active Substance: TERIFLUNOMIDE
  5. AVONEX [Concomitant]
     Active Substance: INTERFERON BETA-1A

REACTIONS (3)
  - COVID-19 [Recovered/Resolved]
  - Blood immunoglobulin G decreased [Not Recovered/Not Resolved]
  - Off label use [Unknown]

NARRATIVE: CASE EVENT DATE: 20220428
